FAERS Safety Report 25805464 (Version 2)
Quarter: 2025Q4

REPORT INFORMATION
  Report Type: Spontaneous
  Country: US (occurrence: US)
  Receive Date: 20250916
  Receipt Date: 20251017
  Transmission Date: 20260118
  Serious: No
  Sender: ADAMAS PHARMA
  Company Number: US-ARIS GLOBAL-ADM202209-003103

PATIENT
  Age: 70 Year
  Sex: Female

DRUGS (2)
  1. GOCOVRI [Suspect]
     Active Substance: AMANTADINE
     Indication: Dyskinesia
     Dosage: 274MG TOTAL /ONCE A DAY AT BEDTIME
     Route: 048
     Dates: start: 20220910
  2. GOCOVRI [Suspect]
     Active Substance: AMANTADINE
     Indication: Parkinson^s disease

REACTIONS (11)
  - Sleep disorder [Unknown]
  - Hyperhidrosis [Unknown]
  - Pain in extremity [Unknown]
  - Depression [Not Recovered/Not Resolved]
  - Insomnia [Not Recovered/Not Resolved]
  - Constipation [Unknown]
  - Peripheral swelling [Unknown]
  - Dizziness postural [Unknown]
  - Dry mouth [Unknown]
  - Fatigue [Unknown]
  - Hallucination [Unknown]
